FAERS Safety Report 9146380 (Version 1)
Quarter: 2013Q1

REPORT INFORMATION
  Report Type: Spontaneous
  Country: US (occurrence: US)
  Receive Date: 20130307
  Receipt Date: 20130307
  Transmission Date: 20140127
  Serious: Yes (Other)
  Sender: FDA-Public Use
  Company Number: US-ABBOTT-13P-163-1054932-00

PATIENT
  Age: 32 None
  Sex: Male

DRUGS (4)
  1. RITONAVIR [Suspect]
     Indication: HIV INFECTION
     Route: 065
  2. COMPLERA [Suspect]
     Indication: HIV INFECTION
     Route: 065
     Dates: start: 20120726
  3. TRUVADA [Suspect]
     Indication: HIV INFECTION
     Route: 065
  4. DARUNAVIR [Suspect]
     Indication: HIV INFECTION
     Dosage: REGIMEN #1
     Route: 065

REACTIONS (8)
  - Genotype drug resistance test positive [Unknown]
  - Virologic failure [Unknown]
  - Genotype drug resistance test positive [Unknown]
  - Hunger [Unknown]
  - Hyperphagia [Unknown]
  - Weight increased [Unknown]
  - Viral load increased [Unknown]
  - Blood HIV RNA increased [Unknown]
